FAERS Safety Report 5144902-X (Version None)
Quarter: 2006Q4

REPORT INFORMATION
  Report Type: 
  Country: None (occurrence: None)
  Receive Date: 20061107
  Receipt Date: 20061026
  Transmission Date: 20070319
  Serious: Yes (Congenital Anomaly, Other)
  Sender: FDA-Public Use
  Company Number: PHNU2006DE03562

PATIENT
  Age: 31 Year
  Sex: Female

DRUGS (2)
  1. SANDIMMUNE [Suspect]
     Indication: GLOMERULONEPHRITIS
     Dosage: 100 MG, BID
     Route: 048
  2. DECORTIN [Concomitant]

REACTIONS (6)
  - ABORTION INDUCED [None]
  - CONGENITAL ANOMALY [None]
  - DRUG EXPOSURE BEFORE PREGNANCY [None]
  - ENCEPHALOCELE [None]
  - PTERYGIUM COLLI [None]
  - SPINE MALFORMATION [None]
